FAERS Safety Report 9366344 (Version 1)
Quarter: 2013Q2

REPORT INFORMATION
  Report Type: Spontaneous
  Country: US (occurrence: US)
  Receive Date: 20130625
  Receipt Date: 20130625
  Transmission Date: 20140414
  Serious: No
  Sender: FDA-Public Use
  Company Number: US-GLAXOSMITHKLINE-A1005406A

PATIENT
  Age: 93 Year
  Sex: Female

DRUGS (6)
  1. VERAMYST [Suspect]
     Indication: RHINITIS ALLERGIC
     Dosage: 2SPR PER DAY
     Route: 045
     Dates: start: 20121212
  2. CALAN [Concomitant]
  3. LISINOPRIL [Concomitant]
  4. SYNTHROID [Concomitant]
  5. WARFARIN [Concomitant]
  6. PROTONIX [Concomitant]

REACTIONS (2)
  - Pruritus generalised [Not Recovered/Not Resolved]
  - Drug ineffective [Unknown]
